FAERS Safety Report 16029852 (Version 1)
Quarter: 2019Q1

REPORT INFORMATION
  Report Type: Report from Study
  Country: US (occurrence: US)
  Receive Date: 20190304
  Receipt Date: 20190304
  Transmission Date: 20190418
  Serious: Yes (Death)
  Sender: FDA-Public Use
  Company Number: US-MYLANLABS-2019M1018322

PATIENT
  Sex: Female

DRUGS (1)
  1. CINACALCET HYDROCHLORIDE. [Suspect]
     Active Substance: CINACALCET HYDROCHLORIDE
     Indication: HYPERPARATHYROIDISM SECONDARY
     Dosage: 90MG AT THE TIME OF DEATH
     Route: 048

REACTIONS (2)
  - Hypocalcaemia [Fatal]
  - Cardio-respiratory arrest [Fatal]
